FAERS Safety Report 13087117 (Version 9)
Quarter: 2019Q4

REPORT INFORMATION
  Report Type: Report from Study
  Country: None (occurrence: US)
  Receive Date: 20170105
  Receipt Date: 20191217
  Transmission Date: 20200122
  Serious: Yes (Hospitalization, Other)
  Sender: FDA-Public Use
  Company Number: US-ABBVIE-16K-163-1779719-00

PATIENT
  Age: 54 Year
  Sex: Female

DRUGS (2)
  1. HUMIRA [Suspect]
     Active Substance: ADALIMUMAB
     Indication: CROHN^S DISEASE
     Dosage: CITRATE FREE
     Route: 058
  2. HUMIRA [Suspect]
     Active Substance: ADALIMUMAB
     Indication: CROHN^S DISEASE
     Route: 058
     Dates: start: 2011, end: 201706

REACTIONS (14)
  - Renal failure [Unknown]
  - Cerebrovascular accident [Recovered/Resolved]
  - Crohn^s disease [Unknown]
  - Carotid artery occlusion [Recovering/Resolving]
  - Pain [Unknown]
  - Lymphoma [Unknown]
  - Crohn^s disease [Recovered/Resolved]
  - Osteopenia [Unknown]
  - Emotional distress [Recovering/Resolving]
  - Blood glucose increased [Unknown]
  - Hypertension [Recovering/Resolving]
  - Wrist fracture [Unknown]
  - White blood cell count increased [Not Recovered/Not Resolved]
  - Memory impairment [Not Recovered/Not Resolved]

NARRATIVE: CASE EVENT DATE: 201511
